FAERS Safety Report 24007857 (Version 1)
Quarter: 2024Q2

REPORT INFORMATION
  Report Type: Spontaneous
  Country: US (occurrence: US)
  Receive Date: 20240625
  Receipt Date: 20240625
  Transmission Date: 20240715
  Serious: Yes (Life-Threatening, Hospitalization)
  Sender: FDA-Public Use
  Company Number: US-AMGEN-USASP2024120798

PATIENT
  Age: 56 Year
  Sex: Female

DRUGS (1)
  1. PREDNISONE [Suspect]
     Active Substance: PREDNISONE
     Indication: Autoimmune haemolytic anaemia
     Dosage: UNK (HIGH-DOSE)
     Route: 065

REACTIONS (7)
  - Histoplasmosis disseminated [Recovering/Resolving]
  - Serratia test positive [Unknown]
  - Hypervolaemia [Unknown]
  - Adrenal insufficiency [Unknown]
  - Acute respiratory distress syndrome [Unknown]
  - Pneumothorax [Unknown]
  - Pneumonia [Unknown]
